FAERS Safety Report 17101449 (Version 2)
Quarter: 2019Q4

REPORT INFORMATION
  Report Type: Spontaneous
  Country: US (occurrence: US)
  Receive Date: 20191202
  Receipt Date: 20191211
  Transmission Date: 20200122
  Serious: Yes (Other)
  Sender: FDA-Public Use
  Company Number: US-ACTELION-A-NJ2019-197063

PATIENT
  Age: 83 Year
  Sex: Male
  Weight: 82.99 kg

DRUGS (5)
  1. UPTRAVI [Suspect]
     Active Substance: SELEXIPAG
     Indication: PULMONARY ARTERIAL HYPERTENSION
     Dosage: 600 MCG, BID
     Route: 048
  2. ELIQUIS [Concomitant]
     Active Substance: APIXABAN
  3. METOPROLOL. [Concomitant]
     Active Substance: METOPROLOL
  4. ADEMPAS [Suspect]
     Active Substance: RIOCIGUAT
     Indication: PRODUCT USED FOR UNKNOWN INDICATION
     Dosage: UNK
     Route: 065
     Dates: start: 20191010
  5. OPSUMIT [Suspect]
     Active Substance: MACITENTAN
     Indication: PULMONARY ARTERIAL HYPERTENSION
     Dosage: UNK
     Route: 048
     Dates: end: 20191019

REACTIONS (9)
  - Oedema peripheral [Unknown]
  - Cardiac failure [Unknown]
  - Condition aggravated [Unknown]
  - Hypotension [Unknown]
  - Blood pressure decreased [Unknown]
  - Adverse event [Unknown]
  - Myalgia [Unknown]
  - Dyspnoea exertional [Unknown]
  - Arthralgia [Unknown]

NARRATIVE: CASE EVENT DATE: 20191010
